FAERS Safety Report 24171661 (Version 1)
Quarter: 2024Q3

REPORT INFORMATION
  Report Type: Report from Study
  Country: US (occurrence: US)
  Receive Date: 20240805
  Receipt Date: 20240805
  Transmission Date: 20241017
  Serious: Yes (Other)
  Sender: ABBVIE
  Company Number: US-ABBVIE-5861036

PATIENT
  Age: 15 Year
  Sex: Female

DRUGS (1)
  1. HUMIRA [Suspect]
     Active Substance: ADALIMUMAB
     Indication: Juvenile idiopathic arthritis
     Dosage: CITRATE FREE
     Route: 058
     Dates: start: 20240711, end: 20240725

REACTIONS (6)
  - Wisdom teeth removal [Recovering/Resolving]
  - Polymenorrhoea [Recovered/Resolved]
  - Procedural pain [Unknown]
  - Abdominal pain upper [Recovering/Resolving]
  - Fatigue [Recovering/Resolving]
  - Migraine [Recovered/Resolved]

NARRATIVE: CASE EVENT DATE: 20240701
